FAERS Safety Report 7352974-7 (Version None)
Quarter: 2011Q1

REPORT INFORMATION
  Report Type: 
  Country: None (occurrence: None)
  Receive Date: 20110315
  Receipt Date: 20110304
  Transmission Date: 20110831
  Serious: Yes (Death, Hospitalization)
  Sender: FDA-Public Use
  Company Number: A0818038A

PATIENT
  Age: 78 Year
  Sex: Female
  Weight: 70.5 kg

DRUGS (4)
  1. HYDROCHLOROTHIAZIDE [Concomitant]
  2. AVANDIA [Suspect]
     Indication: DIABETES MELLITUS
     Dosage: 4MG TWICE PER DAY
     Route: 048
     Dates: start: 20020927, end: 20080318
  3. LISINOPRIL [Concomitant]
  4. DARVOCET [Concomitant]

REACTIONS (3)
  - CEREBROVASCULAR ACCIDENT [None]
  - DEATH [None]
  - OSTEOGENESIS IMPERFECTA [None]
